FAERS Safety Report 23607410 (Version 3)
Quarter: 2024Q2

REPORT INFORMATION
  Report Type: Report from Study
  Country: CA (occurrence: CA)
  Receive Date: 20240307
  Receipt Date: 20240614
  Transmission Date: 20240715
  Serious: Yes (Other)
  Sender: FDA-Public Use
  Company Number: CA-002147023-NVSC2023CA109820

PATIENT
  Sex: Female

DRUGS (1)
  1. KESIMPTA [Suspect]
     Active Substance: OFATUMUMAB
     Indication: Relapsing-remitting multiple sclerosis
     Dosage: 20 MG
     Route: 058
     Dates: start: 20230502, end: 20240430

REACTIONS (4)
  - Expanded disability status scale score increased [Not Recovered/Not Resolved]
  - Headache [Unknown]
  - Muscle spasms [Unknown]
  - Adverse drug reaction [Not Recovered/Not Resolved]
